FAERS Safety Report 7919970 (Version 2)
Quarter: 2013Q1

REPORT INFORMATION
  Report Type: Spontaneous
  Country: US (occurrence: US)
  Receive Date: 20110429
  Receipt Date: 20130320
  Transmission Date: 20140127
  Serious: No
  Sender: FDA-Public Use
  Company Number: US-PFIZER INC-2011091207

PATIENT
  Sex: Female

DRUGS (12)
  1. NEURONTIN [Suspect]
     Dosage: UNK
     Route: 048
  2. RITALIN [Suspect]
     Dosage: UNK
     Route: 048
  3. MOMETASONE FUROATE [Suspect]
     Indication: HYPERSENSITIVITY
     Dosage: UNK
  4. PROVIGIL [Suspect]
     Dosage: UNK
     Route: 048
  5. VICODIN [Suspect]
     Dosage: UNK
     Route: 048
  6. HYOSCYAMINE SULFATE [Suspect]
     Dosage: UNK
     Route: 048
  7. NASONEX [Suspect]
     Indication: HYPERSENSITIVITY
     Dosage: UNK
     Route: 045
  8. MULTIVITAMIN AND MINERAL SUPPLEMENT [Suspect]
     Dosage: UNK
     Route: 048
  9. SYNTHROID [Suspect]
     Dosage: UNK
     Route: 048
  10. HYDROCODONE [Suspect]
     Dosage: UNK
     Route: 048
  11. PATANOL [Suspect]
     Indication: HYPERSENSITIVITY
     Dosage: UNK
  12. ADDERALL [Suspect]
     Dosage: UNK
     Route: 048

REACTIONS (2)
  - Counterfeit drug administered [Unknown]
  - Drug ineffective [Unknown]
